FAERS Safety Report 6666220-0 (Version None)
Quarter: 2010Q2

REPORT INFORMATION
  Report Type: 
  Country: None (occurrence: None)
  Receive Date: 20100402
  Receipt Date: 20100323
  Transmission Date: 20101027
  Serious: Yes (Hospitalization)
  Sender: FDA-Public Use
  Company Number: IT-WATSON-2010-04031

PATIENT
  Age: 22 Year
  Sex: Male

DRUGS (2)
  1. RISPERIDONE [Suspect]
     Indication: COMPULSIVE SEXUAL BEHAVIOUR
     Dosage: 1 MG, DAILY
  2. RISPERIDONE [Suspect]
     Indication: AGGRESSION

REACTIONS (2)
  - BARRETT'S OESOPHAGUS [None]
  - GASTRODUODENAL ULCER [None]
